FAERS Safety Report 6780182-7 (Version None)
Quarter: 2010Q2

REPORT INFORMATION
  Report Type: 
  Country: None (occurrence: None)
  Receive Date: 20100618
  Receipt Date: 20100614
  Transmission Date: 20101027
  Serious: Yes (Other)
  Sender: FDA-Public Use
  Company Number: US-ELI_LILLY_AND_COMPANY-US201006003783

PATIENT
  Sex: Female

DRUGS (4)
  1. HUMALOG [Suspect]
     Indication: TYPE 1 DIABETES MELLITUS
     Dosage: UNK, AS NEEDED
     Route: 058
  2. HUMALOG [Suspect]
     Dosage: 60 U, DAILY (1/D)
     Route: 058
  3. HUMALOG [Suspect]
     Dosage: UNK, AS NEEDED
     Route: 058
  4. HUMALOG [Suspect]
     Dosage: 60 U, DAILY (1/D)
     Route: 058

REACTIONS (10)
  - BLOOD GLUCOSE DECREASED [None]
  - BLOOD GLUCOSE INCREASED [None]
  - CATARACT [None]
  - DRUG INEFFECTIVE [None]
  - GASTRIC ULCER [None]
  - HYPOGLYCAEMIA UNAWARENESS [None]
  - HYPOGLYCAEMIC UNCONSCIOUSNESS [None]
  - OEDEMA PERIPHERAL [None]
  - POOR QUALITY DRUG ADMINISTERED [None]
  - VISION BLURRED [None]
